FAERS Safety Report 21709299 (Version 1)
Quarter: 2022Q4

REPORT INFORMATION
  Report Type: Spontaneous
  Country: CN (occurrence: CN)
  Receive Date: 20221210
  Receipt Date: 20221210
  Transmission Date: 20230113
  Serious: Yes (Life-Threatening, Hospitalization, Other)
  Sender: FDA-Public Use
  Company Number: CN-AMGEN-CHNSP2022210665

PATIENT
  Age: 15 Year
  Sex: Female

DRUGS (10)
  1. FILGRASTIM [Suspect]
     Active Substance: FILGRASTIM
     Indication: Autologous haematopoietic stem cell transplant
     Dosage: UNK
     Route: 065
  2. FILGRASTIM [Suspect]
     Active Substance: FILGRASTIM
     Indication: Product used for unknown indication
  3. PREDNISONE [Concomitant]
     Active Substance: PREDNISONE
     Indication: Product use in unapproved indication
  4. CYCLOSPORINE [Concomitant]
     Active Substance: CYCLOSPORINE
     Indication: Product use in unapproved indication
  5. THROMBOPOIETIN [Concomitant]
     Active Substance: THROMBOPOIETIN
     Indication: Product use in unapproved indication
  6. TAZOBACTAM [Concomitant]
     Active Substance: TAZOBACTAM
     Indication: Pneumonia
  7. LEVOFLOXACIN [Concomitant]
     Active Substance: LEVOFLOXACIN
     Indication: Pneumonia
  8. CEFTAZIDIME [Concomitant]
     Active Substance: CEFTAZIDIME
     Indication: Infection
  9. AVIBACTAM SODIUM [Concomitant]
     Active Substance: AVIBACTAM SODIUM
     Indication: Infection
  10. FOSFOMYCIN [Concomitant]
     Active Substance: FOSFOMYCIN

REACTIONS (15)
  - Oral fungal infection [Recovered/Resolved]
  - Pneumonia [Recovering/Resolving]
  - Bacterial infection [Recovering/Resolving]
  - Sepsis [Recovering/Resolving]
  - Pseudomonas infection [Recovering/Resolving]
  - Mouth ulceration [Recovered/Resolved]
  - Haematemesis [Unknown]
  - Shock haemorrhagic [Recovered/Resolved]
  - Gastrointestinal haemorrhage [Recovered/Resolved]
  - Aspergillus test [Recovering/Resolving]
  - Chronic graft versus host disease [Unknown]
  - Pleural effusion [Recovered/Resolved]
  - Atelectasis [Recovered/Resolved]
  - Off label use [Unknown]
  - Drug effective for unapproved indication [Unknown]

NARRATIVE: CASE EVENT DATE: 20190101
